FAERS Safety Report 12981978 (Version 1)
Quarter: 2016Q4

REPORT INFORMATION
  Report Type: Spontaneous
  Country: US (occurrence: US)
  Receive Date: 20161129
  Receipt Date: 20161129
  Transmission Date: 20170207
  Serious: Yes (Hospitalization)
  Sender: FDA-Public Use
  Company Number: US-PROCTER+GAMBLE-GS16138372

PATIENT
  Age: 73 Year
  Sex: Female

DRUGS (1)
  1. METAMUCIL THERAPY FOR REGULARITY [Suspect]
     Active Substance: PSYLLIUM HUSK
     Indication: CONSTIPATION
     Dosage: 1 1/3 HEAPING SOUP SPOON, UNK FREQ
     Route: 048
     Dates: start: 20161111

REACTIONS (4)
  - Intestinal obstruction [Unknown]
  - Abdominal pain upper [Unknown]
  - Gastric disorder [Unknown]
  - Hyperhidrosis [Unknown]

NARRATIVE: CASE EVENT DATE: 20161111
